FAERS Safety Report 5017411-6 (Version None)
Quarter: 2006Q2

REPORT INFORMATION
  Report Type: 
  Country: None (occurrence: None)
  Receive Date: 20060525
  Receipt Date: 20060509
  Transmission Date: 20061013
  Serious: Yes (Congenital Anomaly, Other)
  Sender: FDA-Public Use
  Company Number: US178943

PATIENT
  Sex: Male

DRUGS (2)
  1. ENBREL [Suspect]
     Indication: PSORIATIC ARTHROPATHY
     Dosage: 2 IN 1 WEEKS, TPL
     Route: 064
  2. NAPROXEN [Concomitant]

REACTIONS (9)
  - ATRIAL SEPTAL DEFECT [None]
  - CHROMOSOME ANALYSIS ABNORMAL [None]
  - DRUG EXPOSURE DURING PREGNANCY [None]
  - HYPOSPADIAS [None]
  - LUNG INFILTRATION [None]
  - NEONATAL DISORDER [None]
  - SPINA BIFIDA OCCULTA [None]
  - VATER SYNDROME [None]
  - WHEEZING [None]
